FAERS Safety Report 8899344 (Version 2)
Quarter: 2012Q4

REPORT INFORMATION
  Report Type: 
  Country: VE (occurrence: VE)
  Receive Date: 20121109
  Receipt Date: 20121114
  Transmission Date: 20130627
  Serious: Yes (Death)
  Sender: FDA-Public Use
  Company Number: VE-PFIZER INC-2012277373

PATIENT
  Age: 76 Year
  Sex: Female

DRUGS (1)
  1. LYRICA [Suspect]
     Indication: MUSCLE PAIN
     Dosage: 75 mg, 1x/day
     Route: 048
     Dates: start: 20120917

REACTIONS (1)
  - Respiratory arrest [Fatal]
